FAERS Safety Report 9221796 (Version 1)
Quarter: 2013Q2

REPORT INFORMATION
  Report Type: Spontaneous
  Country: IT (occurrence: IT)
  Receive Date: 20130410
  Receipt Date: 20130410
  Transmission Date: 20140414
  Serious: Yes (Death, Hospitalization)
  Sender: FDA-Public Use
  Company Number: IT-BAYER-2013-022238

PATIENT
  Age: 65 Year
  Sex: Male

DRUGS (5)
  1. NEXAVAR [Suspect]
     Indication: HEPATOCELLULAR CARCINOMA
     Dosage: DAILY DOSE 400 MG
     Route: 048
     Dates: start: 20121228, end: 20130213
  2. INDERAL [Concomitant]
     Dosage: DAILY DOSE 40 MG
     Route: 048
  3. KANRENOL [Concomitant]
     Dosage: DAILY DOSE 100 MG
     Route: 048
  4. KONAKION [Concomitant]
     Dosage: DAILY DOSE 10 MG
  5. INSULIN [Concomitant]

REACTIONS (1)
  - Hepatic failure [Fatal]
